FAERS Safety Report 4317441-3 (Version None)
Quarter: 2004Q1

REPORT INFORMATION
  Report Type: 
  Country: None (occurrence: None)
  Receive Date: 20040312
  Receipt Date: 20040304
  Transmission Date: 20041129
  Serious: Yes (Hospitalization)
  Sender: FDA-Public Use
  Company Number: 2004CG00487

PATIENT
  Age: 70 Year
  Sex: Male

DRUGS (4)
  1. PULMICORT [Suspect]
     Indication: ASTHMA
     Dosage: 400 UG BID IH
     Route: 055
     Dates: start: 19950101, end: 19950101
  2. PULMICORT [Suspect]
     Indication: CHRONIC OBSTRUCTIVE AIRWAYS DISEASE
     Dosage: 400 UG BID IH
     Route: 055
     Dates: start: 19950101, end: 19950101
  3. PULMICORT [Suspect]
     Indication: ASTHMA
     Dosage: 200 UG BID IH
     Route: 055
     Dates: start: 19950101, end: 20030101
  4. PULMICORT [Suspect]
     Indication: CHRONIC OBSTRUCTIVE AIRWAYS DISEASE
     Dosage: 200 UG BID IH
     Route: 055
     Dates: start: 19950101, end: 20030101

REACTIONS (1)
  - OSTEOCHONDROSIS [None]
